FAERS Safety Report 8295507-3 (Version None)
Quarter: 2012Q2

REPORT INFORMATION
  Report Type: 
  Country: None (occurrence: None)
  Receive Date: 20120418
  Receipt Date: 20120412
  Transmission Date: 20120825
  Serious: Yes (Hospitalization)
  Sender: FDA-Public Use
  Company Number: PHHO2011CA08049

PATIENT
  Sex: Female
  Weight: 5.94 kg

DRUGS (9)
  1. PLACEBO [Suspect]
     Indication: PSEUDOMONAS INFECTION
     Dosage: DOUBLE BLINDED
     Dates: start: 20110419, end: 20110504
  2. PLACEBO [Suspect]
     Dosage: DOUBLE BLINDED
     Dates: start: 20110505, end: 20110509
  3. PLACEBO [Suspect]
     Dosage: DOUBLE BLINDED
     Dates: start: 20110509, end: 20110519
  4. TOBRAMYCIN [Suspect]
     Dosage: DOUBLE BLINDED
     Dates: start: 20110509, end: 20110519
  5. TOBRAMYCIN [Suspect]
     Dosage: DOUBLE BLINDED
     Dates: start: 20110505, end: 20110509
  6. BLINDED NO TREATMENT RECEIVED [Suspect]
     Dosage: DOUBLE BLINDED
     Dates: start: 20110509, end: 20110519
  7. BLINDED NO TREATMENT RECEIVED [Suspect]
     Indication: PSEUDOMONAS INFECTION
     Dosage: DOUBLE BLINDED
     Dates: start: 20110419, end: 20110504
  8. TOBRAMYCIN [Suspect]
     Indication: PSEUDOMONAS INFECTION
     Dosage: DOUBLE BLINDED
     Dates: start: 20110419, end: 20110504
  9. BLINDED NO TREATMENT RECEIVED [Suspect]
     Dosage: DOUBLE BLINDED
     Dates: start: 20110505, end: 20110509

REACTIONS (1)
  - PSEUDOMONAS INFECTION [None]
